FAERS Safety Report 7401695-0 (Version None)
Quarter: 2011Q1

REPORT INFORMATION
  Report Type: 
  Country: None (occurrence: None)
  Receive Date: 20110329
  Receipt Date: 20110222
  Transmission Date: 20110831
  Serious: Yes (Hospitalization)
  Sender: FDA-Public Use
  Company Number: GB-022188

PATIENT
  Age: 81 Year
  Sex: Male

DRUGS (2)
  1. (CHLORAMBUCIL) [Suspect]
     Indication: CHRONIC LYMPHOCYTIC LEUKAEMIA
     Dosage: 10 MG/M2 DAYS - 1-7 EVERY 28 DAYS, ORAL
     Route: 048
     Dates: start: 20101117
  2. OFATUMUMAB [Suspect]
     Indication: CHRONIC LYMPHOCYTIC LEUKAEMIA
     Dosage: 300MG AT DAY 1, 1000 MG DAY 8 FOLLWED BY 1000 ME EVERY 28 DAYSINTRAVENOUS DRIP
     Route: 041
     Dates: start: 20101117

REACTIONS (2)
  - FEBRILE NEUTROPENIA [None]
  - MALAISE [None]
